FAERS Safety Report 10176196 (Version 2)
Quarter: 2014Q2

REPORT INFORMATION
  Report Type: Spontaneous
  Country: US (occurrence: US)
  Receive Date: 20140516
  Receipt Date: 20140620
  Transmission Date: 20141212
  Serious: Yes (Other)
  Sender: FDA-Public Use
  Company Number: US-ALLERGAN-1409078US

PATIENT
  Age: 65 Year
  Sex: Female

DRUGS (3)
  1. RESTASIS [Suspect]
     Indication: DRY EYE
     Dosage: UNK
     Route: 047
     Dates: end: 20140504
  2. ALPHAGAN P [Suspect]
     Indication: INTRAOCULAR PRESSURE INCREASED
     Dosage: UNK
     Route: 047
     Dates: start: 20140214
  3. ARTIFICIAL TEARS                   /00445101/ [Concomitant]
     Indication: DRY EYE
     Dosage: UNK

REACTIONS (12)
  - Retinal detachment [Unknown]
  - Eye operation complication [Unknown]
  - Drug dose omission [Unknown]
  - Weight decreased [Recovering/Resolving]
  - Laceration [Unknown]
  - Diarrhoea [Recovering/Resolving]
  - Eyelid oedema [Not Recovered/Not Resolved]
  - Foreign body sensation in eyes [Recovering/Resolving]
  - Rash [Recovering/Resolving]
  - Eye pain [Recovering/Resolving]
  - Eye irritation [Recovering/Resolving]
  - Eye irritation [Recovering/Resolving]
